FAERS Safety Report 18092619 (Version 1)
Quarter: 2020Q3

REPORT INFORMATION
  Report Type: Spontaneous
  Country: US (occurrence: US)
  Receive Date: 20200730
  Receipt Date: 20200730
  Transmission Date: 20201103
  Serious: No
  Sender: FDA-Public Use
  Company Number: US-GLENMARK PHARMACEUTICALS-2020GMK048193

PATIENT

DRUGS (4)
  1. FLUOCINONIDE CREAM USP, 0.1 % [Suspect]
     Active Substance: FLUOCINONIDE
     Indication: LICHEN SCLEROSUS
     Dosage: UNK
     Route: 065
  2. CARVEDILOL. [Concomitant]
     Active Substance: CARVEDILOL
     Indication: HYPERTENSION
     Dosage: 2.5 MILLIGRAM, BID (NOT SURE ABOUT THE DSOE)
     Route: 048
  3. CLOBETASOL PROPIONATE OINTMENT USP [Suspect]
     Active Substance: CLOBETASOL PROPIONATE
     Indication: LICHEN SCLEROSUS
     Dosage: UNK, OD (2 YEARS OR MORE)
     Route: 061
  4. ZOLOFT [Concomitant]
     Active Substance: SERTRALINE HYDROCHLORIDE
     Indication: ANXIETY
     Dosage: 50 MILLIGRAM, OD
     Route: 048

REACTIONS (2)
  - Product use in unapproved indication [Unknown]
  - Drug ineffective for unapproved indication [Unknown]
